FAERS Safety Report 7737121-1 (Version None)
Quarter: 2011Q3

REPORT INFORMATION
  Report Type: 
  Country: None (occurrence: None)
  Receive Date: 20110908
  Receipt Date: 20110901
  Transmission Date: 20111222
  Serious: Yes (Other)
  Sender: FDA-Public Use
  Company Number: US-TEVA-299474USA

PATIENT

DRUGS (1)
  1. CARBOPLATIN [Suspect]

REACTIONS (1)
  - CARDIO-RESPIRATORY ARREST [None]
